FAERS Safety Report 11921707 (Version 1)
Quarter: 2016Q1

REPORT INFORMATION
  Report Type: Spontaneous
  Country: US (occurrence: US)
  Receive Date: 20160115
  Receipt Date: 20160115
  Transmission Date: 20160526
  Serious: No
  Sender: FDA-Public Use
  Company Number: US-NOVOPROD-472329

PATIENT
  Age: 56 Year
  Sex: Male

DRUGS (1)
  1. SAXENDA [Suspect]
     Active Substance: LIRAGLUTIDE
     Indication: OFF LABEL USE
     Route: 058

REACTIONS (2)
  - Off label use [Unknown]
  - Injection site pain [Not Recovered/Not Resolved]
